FAERS Safety Report 17484246 (Version 1)
Quarter: 2020Q1

REPORT INFORMATION
  Report Type: Spontaneous
  Country: US (occurrence: US)
  Receive Date: 20200302
  Receipt Date: 20200302
  Transmission Date: 20200409
  Serious: No
  Sender: FDA-Public Use
  Company Number: US-ELI_LILLY_AND_COMPANY-US202002007981

PATIENT
  Sex: Male

DRUGS (6)
  1. LANTUS [Concomitant]
     Active Substance: INSULIN GLARGINE
     Indication: PRODUCT USED FOR UNKNOWN INDICATION
     Dosage: UNK, UNKNOWN
     Route: 065
  2. HUMULIN R U-500 [Suspect]
     Active Substance: INSULIN HUMAN
     Indication: TYPE 2 DIABETES MELLITUS
     Dosage: 100-120 IN MORNING, THEN 120 UNITS, SLIDING SCALE
     Route: 058
     Dates: start: 201909
  3. BASAGLAR [Suspect]
     Active Substance: INSULIN GLARGINE
     Indication: PRODUCT USED FOR UNKNOWN INDICATION
  4. HUMULIN R U-500 [Suspect]
     Active Substance: INSULIN HUMAN
     Indication: TYPE 2 DIABETES MELLITUS
     Dosage: 100-120 IN MORNING, THEN 120 UNITS, SLIDING SCALE
     Route: 058
     Dates: start: 201909
  5. HUMULIN R U-500 [Suspect]
     Active Substance: INSULIN HUMAN
     Dosage: 100-120 IN MORNING, THEN 120 UNITS, SLIDING SCALE
     Route: 058
     Dates: start: 201909
  6. HUMULIN R U-500 [Suspect]
     Active Substance: INSULIN HUMAN
     Dosage: 100-120 IN MORNING, THEN 120 UNITS, SLIDING SCALE
     Route: 058
     Dates: start: 201909

REACTIONS (5)
  - Glycosylated haemoglobin increased [Unknown]
  - Incorrect dose administered [Unknown]
  - Insulin resistant diabetes [Unknown]
  - Overdose [Unknown]
  - Blood glucose increased [Unknown]
